FAERS Safety Report 9238310 (Version 1)
Quarter: 2013Q1

REPORT INFORMATION
  Report Type: Spontaneous
  Country: US (occurrence: None)
  Receive Date: 20121107
  Receipt Date: 20121107
  Transmission Date: 20140127
  Serious: Yes (Other)
  Sender: FDA-Public Use
  Company Number: 2012-00402

PATIENT
  Age: 59 Year
  Sex: Male

DRUGS (3)
  1. LISINOPRIL [Suspect]
     Indication: HYPERTENSION
     Route: 048
     Dates: end: 20110629
  2. FUROSEMIDE [Suspect]
     Indication: HYPERTENSION
     Route: 048
  3. CARVEDILOL [Suspect]
     Indication: HYPERTENSION
     Route: 048

REACTIONS (1)
  - Blood pressure increased [None]
